FAERS Safety Report 17728905 (Version 1)
Quarter: 2020Q2

REPORT INFORMATION
  Report Type: Spontaneous
  Country: FR (occurrence: FR)
  Receive Date: 20200430
  Receipt Date: 20200430
  Transmission Date: 20200714
  Serious: Yes (Hospitalization)
  Sender: FDA-Public Use
  Company Number: FR-TEVA-2020-FR-1227810

PATIENT
  Age: 42 Year
  Sex: Female
  Weight: 64 kg

DRUGS (3)
  1. ZELITREX 500 MG, COMPRIME ENROBE [Suspect]
     Active Substance: VALACYCLOVIR HYDROCHLORIDE
     Indication: APHTHOUS ULCER
     Dosage: 3 GRAM
     Route: 048
     Dates: start: 20200319, end: 20200324
  2. NORDIMET 12,5 MG, SOLUTION INJECTABLE EN STYLO PR?REMPLI [Suspect]
     Active Substance: METHOTREXATE
     Dosage: 12.5 MILLIGRAM
     Route: 058
     Dates: start: 202001, end: 20200319
  3. DOXYCYCLINE BASE [Suspect]
     Active Substance: DOXYCYCLINE
     Indication: APHTHOUS ULCER
     Dosage: 300 MILLIGRAM
     Route: 048
     Dates: start: 20200319, end: 20200324

REACTIONS (1)
  - Hepatocellular injury [Recovering/Resolving]

NARRATIVE: CASE EVENT DATE: 20200325
